FAERS Safety Report 20769490 (Version 1)
Quarter: 2022Q2

REPORT INFORMATION
  Report Type: Spontaneous
  Country: KR (occurrence: KR)
  Receive Date: 20220429
  Receipt Date: 20220429
  Transmission Date: 20220721
  Serious: Yes (Other)
  Sender: FDA-Public Use
  Company Number: KR-PURDUE-USA-2022-0293406

PATIENT

DRUGS (1)
  1. LIDOCAINE [Suspect]
     Active Substance: LIDOCAINE
     Indication: Local anaesthesia
     Dosage: UNKNOWN
     Route: 054

REACTIONS (3)
  - Haemorrhage [Unknown]
  - Dysuria [Unknown]
  - Infection [Unknown]
